FAERS Safety Report 5933659-8 (Version None)
Quarter: 2008Q4

REPORT INFORMATION
  Report Type: 
  Country: None (occurrence: None)
  Receive Date: 20081024
  Receipt Date: 20081010
  Transmission Date: 20090506
  Serious: Yes (Disabling)
  Sender: FDA-Public Use
  Company Number: 8037524

PATIENT
  Age: 55 Year
  Sex: Female

DRUGS (3)
  1. PREDNISOLONE [Suspect]
     Dosage: 5 MG /D
  2. CHLOROQUINE PHOSPHATE [Suspect]
     Dosage: 200 MG /D
  3. INDOMETHACIN [Suspect]
     Dosage: 100 MG/D

REACTIONS (5)
  - C-REACTIVE PROTEIN INCREASED [None]
  - HYPOACUSIS [None]
  - OTOTOXICITY [None]
  - RED BLOOD CELL SEDIMENTATION RATE INCREASED [None]
  - TINNITUS [None]
